FAERS Safety Report 7264555-4 (Version None)
Quarter: 2011Q1

REPORT INFORMATION
  Report Type: 
  Country: None (occurrence: None)
  Receive Date: 20110131
  Receipt Date: 20110124
  Transmission Date: 20110831
  Serious: No
  Sender: FDA-Public Use
  Company Number: US-PFIZER INC-2011017154

PATIENT
  Sex: Female
  Weight: 89.796 kg

DRUGS (11)
  1. METOPROLOL [Concomitant]
     Dosage: UNK
  2. LYRICA [Suspect]
     Indication: FIBROMYALGIA
     Dosage: 100 MG, 3X/DAY
     Route: 048
  3. LYRICA [Suspect]
     Indication: SCIATICA
  4. STRATTERA [Concomitant]
     Dosage: UNK
  5. NORCO [Concomitant]
     Dosage: UNK
  6. OMEPRAZOLE [Concomitant]
     Dosage: UNK
  7. ADVAIR [Concomitant]
     Indication: CHRONIC OBSTRUCTIVE PULMONARY DISEASE
     Dosage: UNK
  8. ALBUTEROL [Concomitant]
     Dosage: UNK
  9. CYMBALTA [Concomitant]
     Dosage: UNK
  10. OXYBUTYNIN [Concomitant]
     Dosage: UNK
  11. DIAZEPAM [Concomitant]
     Dosage: UNK

REACTIONS (3)
  - BLOOD MAGNESIUM DECREASED [None]
  - BLOOD BLISTER [None]
  - BLOOD POTASSIUM DECREASED [None]
